FAERS Safety Report 9145864 (Version 1)
Quarter: 2013Q1

REPORT INFORMATION
  Report Type: Report from Study
  Country: FR (occurrence: FR)
  Receive Date: 20130307
  Receipt Date: 20130307
  Transmission Date: 20140127
  Serious: Yes (Hospitalization, Other)
  Sender: FDA-Public Use
  Company Number: FR-GENZYME-CLOF-1002532

PATIENT
  Age: 27 Year
  Sex: Female

DRUGS (10)
  1. EVOLTRA [Suspect]
     Indication: ACUTE MYELOID LEUKAEMIA
     Dosage: 1ST CYCLE OF CONSOLIDATION THERAPY
     Route: 065
     Dates: start: 20120515, end: 20120520
  2. EVOLTRA [Suspect]
     Dosage: 2ND CYCLE OF CONSOLIDATION THERAPY
     Route: 065
     Dates: start: 20120615, end: 20120620
  3. EVOLTRA [Suspect]
     Dosage: 235 MG, UNK
     Route: 042
     Dates: start: 20120719, end: 20120723
  4. CYTARABINE [Suspect]
     Indication: ACUTE MYELOID LEUKAEMIA
     Dosage: 1ST CYCLE OF CONSOLIDATION
     Route: 065
     Dates: start: 20120515, end: 20120520
  5. CYTARABINE [Suspect]
     Dosage: 2ND CYCLE OF CONSOLIDATION
     Route: 065
     Dates: start: 20120615, end: 20120620
  6. CYTARABINE [Suspect]
     Dosage: 7850 MG, UNK
     Route: 042
     Dates: start: 20120718, end: 20120722
  7. FILGRASTIM [Suspect]
     Indication: ACUTE MYELOID LEUKAEMIA
     Dosage: 1ST CYCLE OF CONSOLIDATION THERAPY
     Route: 065
     Dates: start: 20120515, end: 20120520
  8. FILGRASTIM [Suspect]
     Dosage: G-CSF
     Route: 065
     Dates: start: 20120517, end: 20120521
  9. FILGRASTIM [Suspect]
     Dosage: 2ND CYCLE OF CONSOLIDATION THERAPY
     Route: 065
     Dates: start: 20120615, end: 20120620
  10. FILGRASTIM [Suspect]
     Dosage: UNK
     Route: 042
     Dates: start: 20120718, end: 20120722

REACTIONS (10)
  - Skin toxicity [Unknown]
  - Mucous membrane disorder [Unknown]
  - Haemorrhage [Unknown]
  - Pulmonary toxicity [Unknown]
  - Rash erythematous [Recovered/Resolved]
  - Constipation [Unknown]
  - Pain [Unknown]
  - Nausea [Unknown]
  - Vomiting [Unknown]
  - Diarrhoea [Unknown]
